FAERS Safety Report 9843793 (Version 2)
Quarter: 2014Q1

REPORT INFORMATION
  Report Type: Spontaneous
  Country: US (occurrence: None)
  Receive Date: 20131223
  Receipt Date: 20140328
  Transmission Date: 20141002
  Serious: No
  Sender: FDA-Public Use
  Company Number: 1000051762

PATIENT
  Age: 53 Year
  Sex: Female
  Weight: 49 kg

DRUGS (2)
  1. LINZESS (LINACLOTIDE) (145 MICROGRAM, CAPSULES) [Suspect]
     Indication: IRRITABLE BOWEL SYNDROME
     Dosage: 145 MCG (145 MCG, 1 IN 1 D)
     Dates: start: 20131009, end: 20131021
  2. RESTORIL (TEMAZEPAM) [Concomitant]

REACTIONS (4)
  - Pharyngeal oedema [None]
  - Rash generalised [None]
  - Pruritus [None]
  - Urticaria [None]
